FAERS Safety Report 8048663-6 (Version None)
Quarter: 2011Q4

REPORT INFORMATION
  Report Type: 
  Country: None (occurrence: None)
  Receive Date: 20111230
  Receipt Date: 20110202
  Transmission Date: 20120403
  Serious: Yes (Other)
  Sender: FDA-Public Use
  Company Number: 2011027583

PATIENT
  Age: 17 Year
  Sex: Male

DRUGS (1)
  1. PRIVIGEN [Suspect]
     Dosage: 1000 MG/KG 1X/12 HOURS, 1 G/KG/12H

REACTIONS (3)
  - ENTEROCOLITIS INFECTIOUS [None]
  - COLITIS ISCHAEMIC [None]
  - ACUTE RESPIRATORY DISTRESS SYNDROME [None]
